FAERS Safety Report 8167089-8 (Version None)
Quarter: 2012Q1

REPORT INFORMATION
  Report Type: 
  Country: None (occurrence: None)
  Receive Date: 20120221
  Receipt Date: 20120208
  Transmission Date: 20120608
  Serious: Yes (Hospitalization)
  Sender: FDA-Public Use
  Company Number: DSJ-2012-02528

PATIENT
  Sex: Female

DRUGS (3)
  1. AMILORIDE HCL AND HYDROCHLOROTHIAZIDE [Suspect]
     Indication: PRODUCT USED FOR UNKNOWN INDICATION
     Dosage: 25MG/ 2.5MG (1 IN 1 D), PER ORAL
     Route: 048
  2. OLMESARTAN MEDOXOMIL AND HYDROCHLOROTHIZIDE [Suspect]
     Indication: HYPERTENSION
     Dosage: 20/12.5 MG (1 IN 1 D), PER ORAL
     Route: 048
     Dates: end: 20100101
  3. ISOSORBIDE DINITRATE [Suspect]
     Indication: PRODUCT USED FOR UNKNOWN INDICATION
     Dosage: 40 MG (20 MG, 2 IN 1 D), PER ORAL
     Route: 048

REACTIONS (4)
  - DRUG INEFFECTIVE [None]
  - ANGINA PECTORIS [None]
  - HYPERCHOLESTEROLAEMIA [None]
  - CONDITION AGGRAVATED [None]
